FAERS Safety Report 4375231-X (Version None)
Quarter: 2004Q2

REPORT INFORMATION
  Report Type: 
  Country: None (occurrence: None)
  Receive Date: 20040610
  Receipt Date: 20040506
  Transmission Date: 20050107
  Serious: Yes (Life-Threatening, Hospitalization)
  Sender: FDA-Public Use
  Company Number: 2004GB00065

PATIENT
  Age: 67 Year
  Sex: Female
  Weight: 100 kg

DRUGS (15)
  1. CRESTOR [Suspect]
     Indication: HYPERCHOLESTEROLAEMIA
     Dosage: 40 MG PO
     Route: 048
     Dates: start: 20030523, end: 20031207
  2. HUMULIN M2 [Suspect]
     Indication: DIABETES MELLITUS NON-INSULIN-DEPENDENT
     Dosage: 20 U BID
  3. ACETAMINOPHEN [Suspect]
     Dosage: 1 G QID
  4. NICORANDIL [Concomitant]
  5. LANSOPRAZOLE [Concomitant]
  6. ATENOLOL [Concomitant]
  7. CLOPIDOGREL BISULFATE [Concomitant]
  8. THYROXINE [Concomitant]
  9. ASPIRIN [Concomitant]
  10. ISOSORBIDE MONONITRATE [Concomitant]
  11. RAMIPRIL [Concomitant]
  12. METOCLOPRAMIDE [Concomitant]
  13. ADALAT CC [Concomitant]
  14. METOPROLOL TARTRATE [Concomitant]
  15. GAVISCON [Concomitant]

REACTIONS (13)
  - CARDIOVASCULAR DISORDER [None]
  - CATHETER RELATED COMPLICATION [None]
  - CATHETER RELATED INFECTION [None]
  - DEEP VEIN THROMBOSIS [None]
  - DIALYSIS [None]
  - ECG SIGNS OF MYOCARDIAL ISCHAEMIA [None]
  - HEPARIN-INDUCED THROMBOCYTOPENIA [None]
  - HYPOTENSION [None]
  - MYOCARDIAL INFARCTION [None]
  - POOR VENOUS ACCESS [None]
  - RENAL FAILURE ACUTE [None]
  - RHABDOMYOLYSIS [None]
  - STAPHYLOCOCCAL SEPSIS [None]
